FAERS Safety Report 8188141-7 (Version None)
Quarter: 2012Q1

REPORT INFORMATION
  Report Type: 
  Country: None (occurrence: None)
  Receive Date: 20120306
  Receipt Date: 20120227
  Transmission Date: 20120608
  Serious: Yes (Hospitalization)
  Sender: FDA-Public Use
  Company Number: US-BAYER-2012-020067

PATIENT
  Age: 43 Year
  Sex: Female

DRUGS (7)
  1. TOPAMAX [Concomitant]
     Dosage: 200 MG, UNK
     Dates: start: 20110712
  2. SYNTHROID [Concomitant]
     Dosage: 125 MCG/24HR, UNK
     Dates: start: 20110712
  3. ABILIFY [Concomitant]
     Dosage: 7.5 MG, UNK
     Dates: end: 20110715
  4. LEXAPRO [Concomitant]
     Dosage: 20 MG, QD
     Dates: start: 20110712
  5. LEVOXYL [Concomitant]
     Dosage: 0.112 MG, QD
     Dates: start: 20110712
  6. YAZ [Suspect]
     Dosage: UNK
     Dates: start: 20100101, end: 20110715
  7. NORTRIPTYLINE HCL [Concomitant]
     Dosage: UNK
     Dates: start: 20110712

REACTIONS (1)
  - EMBOLIC STROKE [None]
